FAERS Safety Report 7590893-1 (Version None)
Quarter: 2011Q3

REPORT INFORMATION
  Report Type: 
  Country: None (occurrence: None)
  Receive Date: 20110705
  Receipt Date: 20110628
  Transmission Date: 20111222
  Serious: Yes (Hospitalization)
  Sender: FDA-Public Use
  Company Number: US-ABBOTT-07P-163-0420626-00

PATIENT
  Sex: Female
  Weight: 48.578 kg

DRUGS (16)
  1. CELEBREX [Suspect]
     Indication: PRODUCT USED FOR UNKNOWN INDICATION
     Dates: end: 20100101
  2. ADVAIR DISKUS 100/50 [Concomitant]
     Indication: CHRONIC OBSTRUCTIVE PULMONARY DISEASE
  3. HUMIRA [Suspect]
  4. LEVOTHYROXINE SODIUM [Concomitant]
     Indication: HYPOTHYROIDISM
  5. SPIRIVA [Concomitant]
     Indication: CHRONIC OBSTRUCTIVE PULMONARY DISEASE
  6. ACETAMINOPHEN [Concomitant]
     Indication: RHEUMATOID ARTHRITIS
  7. HUMIRA [Suspect]
     Indication: RHEUMATOID ARTHRITIS
     Route: 058
     Dates: start: 20030101, end: 20071012
  8. AVALIDE [Concomitant]
     Indication: PRODUCT USED FOR UNKNOWN INDICATION
     Route: 048
  9. PLAQUENIL [Concomitant]
     Indication: RHEUMATOID ARTHRITIS
     Route: 048
  10. METOPROLOL TARTRATE [Concomitant]
     Indication: HYPERTENSION
  11. LOMOTIL [Concomitant]
     Indication: DIARRHOEA
  12. XANAX [Concomitant]
     Indication: ANXIETY
  13. TOPROL-XL [Concomitant]
     Indication: PRODUCT USED FOR UNKNOWN INDICATION
     Route: 048
  14. THYROID TAB [Concomitant]
     Indication: PRODUCT USED FOR UNKNOWN INDICATION
     Route: 048
  15. ZOLOFT [Concomitant]
     Indication: DEPRESSION
  16. LASIX [Concomitant]
     Indication: FLUID RETENTION

REACTIONS (16)
  - LUNG NEOPLASM MALIGNANT [None]
  - RENAL ARTERY STENOSIS [None]
  - HIP FRACTURE [None]
  - LUNG NEOPLASM [None]
  - RESPIRATORY TRACT INFECTION [None]
  - FALL [None]
  - DIARRHOEA [None]
  - COLITIS ISCHAEMIC [None]
  - BLISTER [None]
  - CHRONIC OBSTRUCTIVE PULMONARY DISEASE [None]
  - ANAEMIA [None]
  - PROTEINURIA [None]
  - DUODENAL ULCER [None]
  - DYSPNOEA [None]
  - INCOHERENT [None]
  - GENERAL PHYSICAL HEALTH DETERIORATION [None]
